FAERS Safety Report 6962467-4 (Version None)
Quarter: 2010Q3

REPORT INFORMATION
  Report Type: 
  Country: None (occurrence: None)
  Receive Date: 20100902
  Receipt Date: 20100823
  Transmission Date: 20110219
  Serious: Yes (Disabling)
  Sender: FDA-Public Use
  Company Number: AU-PFIZER INC-2010106132

PATIENT
  Age: 43 Year
  Sex: Female
  Weight: 50 kg

DRUGS (1)
  1. CHAMPIX [Suspect]
     Indication: TOBACCO USER
     Dosage: 2MG/DAY
     Route: 048
     Dates: start: 20100720, end: 20100811

REACTIONS (3)
  - MOOD ALTERED [None]
  - PARANOIA [None]
  - TEARFULNESS [None]
